FAERS Safety Report 25902641 (Version 1)
Quarter: 2025Q4

REPORT INFORMATION
  Report Type: Spontaneous
  Country: US (occurrence: US)
  Receive Date: 20251009
  Receipt Date: 20251009
  Transmission Date: 20260118
  Serious: Yes (Other)
  Sender: MYLAN
  Company Number: US-MYLANLABS-2025M1085441

PATIENT
  Age: 69 Year

DRUGS (2)
  1. EPINEPHRINE [Suspect]
     Active Substance: EPINEPHRINE
     Indication: Stevens-Johnson syndrome
     Dosage: 206.4 MILLILITER, QH, THE INFUSION WAS STARTED AT A RATE OF 206.4ML PER HOUR WITH 0.8 MCG/KG/MIN FROM A 250ML BAG
  2. EPINEPHRINE [Suspect]
     Active Substance: EPINEPHRINE
     Indication: Vasopressive therapy
     Dosage: 258 MILLILITER, QH,FINAL INFUSION RATE OF 258 ML PER HOUR WITH 1 MCG/KG/MIN

REACTIONS (2)
  - Product knowledge deficit [Unknown]
  - Product administration interrupted [Unknown]
